FAERS Safety Report 9019599 (Version 1)
Quarter: 2013Q1

REPORT INFORMATION
  Report Type: Spontaneous
  Country: US (occurrence: US)
  Receive Date: 20130118
  Receipt Date: 20130118
  Transmission Date: 20140127
  Serious: Yes (Hospitalization)
  Sender: FDA-Public Use
  Company Number: US-ASTRAZENECA-2013SE02745

PATIENT
  Age: 75 Year
  Sex: Female

DRUGS (1)
  1. PULMICORT FLEXHALER [Suspect]
     Indication: PULMONARY SARCOIDOSIS
     Dosage: 1 PUFF ,TWO TIMES A DAY
     Route: 055
     Dates: start: 2009

REACTIONS (3)
  - Pneumonia bacterial [Not Recovered/Not Resolved]
  - Sepsis [Recovering/Resolving]
  - Dyspnoea exertional [Not Recovered/Not Resolved]
